FAERS Safety Report 12647070 (Version 1)
Quarter: 2016Q3

REPORT INFORMATION
  Report Type: Spontaneous
  Country: US (occurrence: None)
  Receive Date: 20160811
  Receipt Date: 20160811
  Transmission Date: 20161109
  Serious: No
  Sender: FDA-Public Use
  Company Number: None

PATIENT
  Age: 57 Year
  Sex: Female
  Weight: 54.43 kg

DRUGS (5)
  1. CLARITHYROMYCIN [Suspect]
     Active Substance: CLARITHROMYCIN
  2. AMOXICILLIN. [Suspect]
     Active Substance: AMOXICILLIN
  3. PANTOPRAZOLE [Concomitant]
     Active Substance: PANTOPRAZOLE SODIUM
  4. CIPROFLOXACIN. [Suspect]
     Active Substance: CIPROFLOXACIN
     Indication: DIVERTICULITIS
  5. METRONIDAZOLE. [Suspect]
     Active Substance: METRONIDAZOLE
     Indication: HELICOBACTER INFECTION

REACTIONS (8)
  - Asthenia [None]
  - Abdominal distension [None]
  - Arthralgia [None]
  - Gastric infection [None]
  - Dizziness [None]
  - Somnolence [None]
  - Depressed mood [None]
  - Heart rate increased [None]

NARRATIVE: CASE EVENT DATE: 20160801
